FAERS Safety Report 9198335 (Version 1)
Quarter: 2013Q1

REPORT INFORMATION
  Report Type: Spontaneous
  Country: US (occurrence: None)
  Receive Date: 20130327
  Receipt Date: 20130327
  Transmission Date: 20140127
  Serious: Yes (Other)
  Sender: FDA-Public Use
  Company Number: None

PATIENT
  Sex: Female
  Weight: 71.49 kg

DRUGS (2)
  1. FOSAMAX [Suspect]
     Indication: POSTMENOPAUSE
     Route: 048
  2. FOSAMAX [Suspect]
     Indication: PROPHYLAXIS
     Route: 048

REACTIONS (3)
  - Calcinosis [None]
  - Cardiac disorder [None]
  - Spinal disorder [None]
